FAERS Safety Report 9057797 (Version 1)
Quarter: 2013Q1

REPORT INFORMATION
  Report Type: Spontaneous
  Country: US (occurrence: None)
  Receive Date: 20130204
  Receipt Date: 20130204
  Transmission Date: 20140127
  Serious: Yes (Life-Threatening, Other)
  Sender: FDA-Public Use
  Company Number: None

PATIENT
  Age: 66 Year
  Sex: Female
  Weight: 55.79 kg

DRUGS (3)
  1. ATORVASTATIN [Suspect]
     Indication: BLOOD CHOLESTEROL INCREASED
     Dosage: ONE TABLET DAILY PO
     Dates: start: 20130117, end: 20130123
  2. ATORVASTATIN [Suspect]
     Indication: ISCHAEMIC HEART DISEASE PROPHYLAXIS
     Dosage: ONE TABLET DAILY PO
     Dates: start: 20130117, end: 20130123
  3. ATORVASTATIN [Suspect]
     Indication: CEREBROVASCULAR ACCIDENT PROPHYLAXIS
     Dosage: ONE TABLET DAILY PO
     Dates: start: 20130117, end: 20130123

REACTIONS (12)
  - Pain in extremity [None]
  - Heart rate increased [None]
  - Hypoaesthesia [None]
  - Palpitations [None]
  - Chest discomfort [None]
  - Headache [None]
  - Cardiac flutter [None]
  - Peripheral coldness [None]
  - Muscle twitching [None]
  - Tinnitus [None]
  - Haemorrhoids [None]
  - Incontinence [None]
